FAERS Safety Report 17880511 (Version 5)
Quarter: 2020Q4

REPORT INFORMATION
  Report Type: Report from Study
  Country: US (occurrence: US)
  Receive Date: 20200610
  Receipt Date: 20201117
  Transmission Date: 20210113
  Serious: Yes (Other)
  Sender: FDA-Public Use
  Company Number: NVSC2020US160450

PATIENT
  Sex: Female

DRUGS (2)
  1. ENTRESTO [Suspect]
     Active Substance: SACUBITRIL\VALSARTAN
     Indication: CARDIAC FAILURE
     Dosage: 100 MG, UNKNOWN (49/51 MG)
     Route: 048
  2. ENTRESTO [Suspect]
     Active Substance: SACUBITRIL\VALSARTAN
     Dosage: 50 MG, UNKNOWN (24/26 MG)
     Route: 048

REACTIONS (15)
  - Abdominal distension [Unknown]
  - Fatigue [Unknown]
  - Fall [Recovering/Resolving]
  - Gastrointestinal haemorrhage [Recovering/Resolving]
  - Weight increased [Unknown]
  - Product dose omission issue [Unknown]
  - Oliguria [Unknown]
  - Generalised anxiety disorder [Not Recovered/Not Resolved]
  - Depression [Not Recovered/Not Resolved]
  - Weight decreased [Unknown]
  - Peripheral swelling [Unknown]
  - Aphasia [Not Recovered/Not Resolved]
  - Gait inability [Unknown]
  - Weight fluctuation [Unknown]
  - Hypotension [Unknown]
